FAERS Safety Report 6971495-4 (Version None)
Quarter: 2010Q3

REPORT INFORMATION
  Report Type: 
  Country: None (occurrence: None)
  Receive Date: 20100908
  Receipt Date: 20100830
  Transmission Date: 20110219
  Serious: Yes (Life-Threatening, Hospitalization)
  Sender: FDA-Public Use
  Company Number: JP-ABBOTT-08P-087-0465317-00

PATIENT
  Age: 39 Year
  Sex: Male

DRUGS (13)
  1. NORVIR [Suspect]
     Indication: HIV INFECTION
     Dosage: DAILY
     Route: 048
     Dates: start: 20070401, end: 20090401
  2. NORVIR [Suspect]
     Dates: start: 20090402
  3. ATAZANAVIR [Suspect]
     Indication: HIV INFECTION
     Dosage: 300 MG, DAILY
     Route: 048
     Dates: start: 20070401, end: 20090401
  4. EMTRICITABINE W/TENOFOVIR [Suspect]
     Indication: HIV INFECTION
     Dosage: 1 TAB, DAILY
     Route: 048
     Dates: start: 20070401
  5. PENTAMIDINE ISETHIONATE [Concomitant]
     Indication: ANTIFUNGAL PROPHYLAXIS
     Dosage: 100 MG, DAILY, ONCE PER MONTH
     Route: 055
     Dates: start: 20070401
  6. ASPIRIN [Concomitant]
     Indication: PRODUCT USED FOR UNKNOWN INDICATION
  7. CLOPIDOGREL BISULFATE [Concomitant]
     Indication: PRODUCT USED FOR UNKNOWN INDICATION
  8. OLMESARTAN MEDOXOMIL [Concomitant]
     Indication: PRODUCT USED FOR UNKNOWN INDICATION
  9. PRAVASTATIN SODIUM [Concomitant]
     Indication: PRODUCT USED FOR UNKNOWN INDICATION
  10. NICORANDIL [Concomitant]
     Indication: PRODUCT USED FOR UNKNOWN INDICATION
  11. FOSAMPRENAVIR CALCIUM HYDRATE [Concomitant]
     Indication: HIV INFECTION
     Route: 048
     Dates: start: 20090402
  12. FAMOTIDINE [Concomitant]
     Indication: MYOCARDIAL INFARCTION
     Route: 048
     Dates: start: 20090401
  13. DILTIAZEM HYDROCHLORIDE [Concomitant]
     Indication: MYOCARDIAL INFARCTION
     Route: 048
     Dates: start: 20090401

REACTIONS (2)
  - ACUTE MYOCARDIAL INFARCTION [None]
  - ANGINA UNSTABLE [None]
